FAERS Safety Report 23722110 (Version 1)
Quarter: 2024Q2

REPORT INFORMATION
  Report Type: Spontaneous
  Country: FR (occurrence: FR)
  Receive Date: 20240409
  Receipt Date: 20240409
  Transmission Date: 20240715
  Serious: Yes (Life-Threatening, Other)
  Sender: FDA-Public Use
  Company Number: FR-AFSSAPS-AN2024000439

PATIENT
  Age: 69 Year
  Sex: Male

DRUGS (4)
  1. BISOPROLOL [Interacting]
     Active Substance: BISOPROLOL\BISOPROLOL FUMARATE
     Indication: Hypertension
     Dosage: 5 MILLIGRAM, ONCE A DAY
     Route: 048
     Dates: end: 20240226
  2. ENALAPRIL [Interacting]
     Active Substance: ENALAPRIL
     Indication: Hypertension
     Dosage: 20 MILLIGRAM, ONCE A DAY
     Route: 048
     Dates: end: 20240226
  3. LERCANIDIPINE [Interacting]
     Active Substance: LERCANIDIPINE
     Indication: Hypertension
     Dosage: 10 MILLIGRAM, ONCE A DAY
     Route: 048
     Dates: end: 20240226
  4. RILMENIDINE [Interacting]
     Active Substance: RILMENIDINE
     Indication: Hypertension
     Dosage: 1 MILLIGRAM, ONCE A DAY
     Route: 048
     Dates: end: 20240220

REACTIONS (2)
  - Shock [Recovered/Resolved]
  - Drug interaction [Recovered/Resolved]

NARRATIVE: CASE EVENT DATE: 20240226
